FAERS Safety Report 9259587 (Version 3)
Quarter: 2014Q1

REPORT INFORMATION
  Report Type: Spontaneous
  Country: US (occurrence: US)
  Receive Date: 20130429
  Receipt Date: 20140205
  Transmission Date: 20141002
  Serious: Yes (Disabling)
  Sender: FDA-Public Use
  Company Number: US-ASTRAZENECA-2013SE27500

PATIENT
  Age: 73 Year
  Sex: Female
  Weight: 45.4 kg

DRUGS (18)
  1. NEXIUM [Suspect]
     Indication: GASTROOESOPHAGEAL REFLUX DISEASE
     Route: 048
     Dates: start: 1995
  2. NEXIUM [Suspect]
     Indication: GASTROOESOPHAGEAL REFLUX DISEASE
     Route: 048
     Dates: start: 20060113
  3. NEXIUM [Suspect]
     Indication: GASTROOESOPHAGEAL REFLUX DISEASE
     Route: 048
     Dates: start: 201103
  4. PRILOSEC [Suspect]
     Indication: GASTROOESOPHAGEAL REFLUX DISEASE
     Route: 048
     Dates: start: 1994, end: 1995
  5. PRILOSEC [Suspect]
     Indication: GASTROOESOPHAGEAL REFLUX DISEASE
     Route: 048
     Dates: start: 201103
  6. FOSAMAX [Concomitant]
  7. FETANYL [Concomitant]
     Indication: PAIN
  8. ROBAXIN [Concomitant]
     Indication: MUSCLE RELAXANT THERAPY
  9. SYNTHROID [Concomitant]
     Indication: HYPOTHYROIDISM
  10. HYDROCODONE [Concomitant]
     Indication: PAIN
  11. LOVASTATIN [Concomitant]
     Indication: BLOOD CHOLESTEROL INCREASED
  12. ESTROGEN [Concomitant]
     Dates: start: 1995, end: 2000
  13. GABAPENTIN [Concomitant]
  14. PAROXETINE HCL [Concomitant]
  15. OXAPROZIN [Concomitant]
  16. TRAMADOL [Concomitant]
  17. LYRICA [Concomitant]
  18. AVINAZ [Concomitant]

REACTIONS (7)
  - Back injury [Unknown]
  - Osteoporosis [Unknown]
  - Bone disorder [Unknown]
  - Multiple fractures [Unknown]
  - Rib fracture [Unknown]
  - Bone loss [Unknown]
  - Depression [Unknown]
